FAERS Safety Report 5787510-X (Version None)
Quarter: 2008Q2

REPORT INFORMATION
  Report Type: 
  Country: None (occurrence: None)
  Receive Date: 20080623
  Receipt Date: 20080529
  Transmission Date: 20081010
  Serious: Yes (Other)
  Sender: FDA-Public Use
  Company Number: 2008S1010617

PATIENT
  Age: 40 Year
  Sex: Female

DRUGS (1)
  1. BYSTOLIC [Suspect]
     Dosage: 5 MG; DAILY; ORAL
     Route: 048
     Dates: end: 20080501

REACTIONS (5)
  - BLOOD SODIUM DECREASED [None]
  - HIP FRACTURE [None]
  - HYPOTENSION [None]
  - LUNG INJURY [None]
  - SYNCOPE [None]
